FAERS Safety Report 6967063-0 (Version None)
Quarter: 2010Q3

REPORT INFORMATION
  Report Type: 
  Country: None (occurrence: None)
  Receive Date: 20100907
  Receipt Date: 20100823
  Transmission Date: 20110219
  Serious: Yes (Hospitalization, Other)
  Sender: FDA-Public Use
  Company Number: US-ELI_LILLY_AND_COMPANY-US201007003879

PATIENT
  Sex: Female

DRUGS (19)
  1. FORTEO [Suspect]
     Indication: OSTEOPOROSIS
     Dosage: 20 UG, DAILY (1/D)
     Route: 065
  2. BENAZEPRIL HYDROCHLORIDE [Concomitant]
     Dosage: 20 MG, DAILY (1/D)
  3. CARVEDILOL [Concomitant]
     Dosage: 25 MG, 2/D
  4. LEVOXYL [Concomitant]
     Dosage: 50 UG, DAILY (1/D)
  5. ALLOPURINOL [Concomitant]
     Dosage: 100 MG, DAILY (1/D)
  6. CALCIUM [Concomitant]
     Dosage: UNK, UNKNOWN
     Route: 065
  7. VITAMIN D [Concomitant]
     Dosage: UNK, UNKNOWN
     Route: 065
  8. BENTYL [Concomitant]
     Dosage: 10 MG, AS NEEDED
  9. CITALOPRAM HYDROBROMIDE [Concomitant]
     Dosage: 10 MG, DAILY (1/D)
  10. GABAPENTIN [Concomitant]
     Dosage: 300 MG, UNK
  11. NITROGLYCERIN [Concomitant]
     Dosage: 0.3 MG, AS NEEDED
  12. PRILOSEC [Concomitant]
     Dosage: 20 MG, DAILY (1/D)
  13. PROMETHAZINE [Concomitant]
     Dosage: 25 MG, AS NEEDED
  14. TRAMADOL HCL [Concomitant]
     Dosage: 50 MG, AS NEEDED
  15. TRAVATAN [Concomitant]
     Dosage: 1 GTT, 2/D
  16. AVELOX [Concomitant]
     Dosage: 400 MG, DAILY (1/D)
  17. IRON SULFATETHIAMIN COMPOUND TAB [Concomitant]
     Dosage: 325 MG, 2/D
  18. LOTENSIN [Concomitant]
  19. VICODIN [Concomitant]

REACTIONS (5)
  - ASTHENIA [None]
  - CEREBROVASCULAR ACCIDENT [None]
  - LOSS OF CONSCIOUSNESS [None]
  - PNEUMONIA [None]
  - SKIN CANCER [None]
